FAERS Safety Report 25645369 (Version 2)
Quarter: 2025Q3

REPORT INFORMATION
  Report Type: Spontaneous
  Country: JP (occurrence: JP)
  Receive Date: 20250805
  Receipt Date: 20250811
  Transmission Date: 20251021
  Serious: Yes (Hospitalization, Other)
  Sender: SANOFI AVENTIS
  Company Number: JP-MLMSERVICE-20250725-PI591599-00249-1

PATIENT
  Age: 80 Year
  Sex: Male
  Weight: 65 kg

DRUGS (11)
  1. OXALIPLATIN [Interacting]
     Active Substance: OXALIPLATIN
     Indication: Gastric cancer stage III
     Route: 042
  2. OXALIPLATIN [Interacting]
     Active Substance: OXALIPLATIN
     Indication: HER2 positive gastric cancer
  3. OXALIPLATIN [Interacting]
     Active Substance: OXALIPLATIN
     Indication: Metastases to lymph nodes
  4. TRASTUZUMAB [Interacting]
     Active Substance: TRASTUZUMAB
     Indication: Gastric cancer stage III
  5. TRASTUZUMAB [Interacting]
     Active Substance: TRASTUZUMAB
     Indication: HER2 positive gastric cancer
  6. TRASTUZUMAB [Interacting]
     Active Substance: TRASTUZUMAB
     Indication: Metastases to lymph nodes
  7. GIMERACIL\OTERACIL\TEGAFUR [Concomitant]
     Active Substance: GIMERACIL\OTERACIL POTASSIUM\TEGAFUR
     Indication: Gastric cancer stage III
     Dosage: 100 MG, QD DAYS 1?14
     Route: 048
  8. GIMERACIL\OTERACIL\TEGAFUR [Concomitant]
     Active Substance: GIMERACIL\OTERACIL POTASSIUM\TEGAFUR
     Indication: Gastric cancer stage III
  9. GIMERACIL\OTERACIL\TEGAFUR [Concomitant]
     Active Substance: GIMERACIL\OTERACIL POTASSIUM\TEGAFUR
     Indication: Metastases to lymph nodes
  10. APREPITANT [Concomitant]
     Active Substance: APREPITANT
     Dosage: 125 MG, QD DAY 1
  11. APREPITANT [Concomitant]
     Active Substance: APREPITANT
     Dosage: 80 MG, QD ON DAYS 2 AND 3

REACTIONS (12)
  - Cardiac failure [Recovered/Resolved]
  - Ventricular dysfunction [Recovered/Resolved]
  - Bundle branch block right [Recovered/Resolved]
  - Ventricular extrasystoles [Recovered/Resolved]
  - Bradycardia [Recovered/Resolved]
  - Drug interaction [Recovered/Resolved]
  - Syncope [Recovered/Resolved]
  - Dyspnoea [Recovered/Resolved]
  - Chest pain [Recovered/Resolved]
  - Hypotension [Recovered/Resolved]
  - Ventricular tachycardia [Recovered/Resolved]
  - Cardiac contractility decreased [Recovered/Resolved]
